FAERS Safety Report 15469862 (Version 2)
Quarter: 2018Q4

REPORT INFORMATION
  Report Type: Spontaneous
  Country: US (occurrence: US)
  Receive Date: 20181005
  Receipt Date: 20181011
  Transmission Date: 20190205
  Serious: Yes (Hospitalization, Other)
  Sender: FDA-Public Use
  Company Number: US-BAYER-2018-182207

PATIENT
  Age: 30 Year
  Sex: Female
  Weight: 91.6 kg

DRUGS (2)
  1. FLEXERIL [Concomitant]
     Active Substance: CYCLOBENZAPRINE HYDROCHLORIDE
     Indication: MUSCLE SPASMS
     Dosage: 1 DF, PRN
     Route: 048
     Dates: start: 20180829
  2. MIRENA [Suspect]
     Active Substance: LEVONORGESTREL
     Dosage: 20 MG/24HR, CONT
     Route: 015

REACTIONS (5)
  - Dyspnoea [None]
  - Major depression [None]
  - Anxiety [None]
  - Costochondritis [None]
  - Chest pain [None]
